FAERS Safety Report 23510413 (Version 2)
Quarter: 2024Q1

REPORT INFORMATION
  Report Type: Other
  Country: US (occurrence: None)
  Receive Date: 20240211
  Receipt Date: 20240219
  Transmission Date: 20240409
  Serious: Yes (Hospitalization)
  Sender: FDA-Public Use
  Company Number: US-ROCHE-3504641

PATIENT
  Age: 66 Year
  Sex: Male

DRUGS (9)
  1. OCRELIZUMAB [Suspect]
     Active Substance: OCRELIZUMAB
     Indication: Multiple sclerosis
     Dosage: FIRST HALF OF FIRST DOSE?06/OCT/2020, SECOND HALF OF FIRST DOSE
     Route: 065
     Dates: start: 20200922
  2. OCRELIZUMAB [Suspect]
     Active Substance: OCRELIZUMAB
     Dosage: SUBSEQUENT DOSE ADMINISTERED ON 02/DEC/2022, 11/JUL/2023,
     Route: 065
     Dates: start: 20210406
  3. LISINOPRIL [Concomitant]
     Active Substance: LISINOPRIL
     Dates: start: 20050403
  4. FINASTERIDE [Concomitant]
     Active Substance: FINASTERIDE
     Dates: start: 20191205
  5. FUROSEMIDE [Concomitant]
     Active Substance: FUROSEMIDE
     Dates: start: 20150604
  6. WARFARIN [Concomitant]
     Active Substance: WARFARIN
     Dates: start: 20111221
  7. TAMSULOSIN [Concomitant]
     Active Substance: TAMSULOSIN
     Dates: start: 20200123
  8. CYCLOBENZAPRINE [Concomitant]
     Active Substance: CYCLOBENZAPRINE
     Dates: start: 20191205
  9. APIXABAN [Concomitant]
     Active Substance: APIXABAN
     Dates: start: 20231221

REACTIONS (1)
  - Urinary tract infection [Recovered/Resolved]

NARRATIVE: CASE EVENT DATE: 20240109
